FAERS Safety Report 5368379-4 (Version None)
Quarter: 2007Q2

REPORT INFORMATION
  Report Type: 
  Country: None (occurrence: None)
  Receive Date: 20070625
  Receipt Date: 20070614
  Transmission Date: 20071010
  Serious: Yes (Death)
  Sender: FDA-Public Use
  Company Number: US-AMGEN-US229788

PATIENT
  Sex: Male

DRUGS (11)
  1. VECTIBIX [Suspect]
     Indication: COLORECTAL CANCER
     Route: 065
     Dates: start: 20070529
  2. LASIX [Concomitant]
     Route: 065
  3. ALLOPURINOL [Concomitant]
     Route: 065
  4. COUMADIN [Concomitant]
     Route: 065
  5. DILTIAZEM [Concomitant]
     Route: 065
  6. SEREVENT [Concomitant]
     Route: 065
  7. ALBUTEROL [Concomitant]
     Route: 065
  8. IMODIUM [Concomitant]
     Route: 065
  9. CLARITIN [Concomitant]
     Route: 065
  10. DECADRON [Concomitant]
     Route: 065
  11. OXYGEN [Concomitant]
     Route: 065

REACTIONS (2)
  - ATRIAL FIBRILLATION [None]
  - CHRONIC OBSTRUCTIVE PULMONARY DISEASE [None]
